FAERS Safety Report 14967693 (Version 1)
Quarter: 2018Q2

REPORT INFORMATION
  Report Type: Report from Study
  Country: CN (occurrence: CN)
  Receive Date: 20180604
  Receipt Date: 20180604
  Transmission Date: 20180711
  Serious: Yes (Hospitalization)
  Sender: FDA-Public Use
  Company Number: CN-AMGEN-CHNCT2018073666

PATIENT
  Age: 42 Year
  Sex: Female

DRUGS (12)
  1. CINACALCET HCL [Suspect]
     Active Substance: CINACALCET HYDROCHLORIDE
     Dosage: 50 MG, QD
     Route: 048
     Dates: start: 20170728, end: 20170921
  2. CINACALCET HCL [Suspect]
     Active Substance: CINACALCET HYDROCHLORIDE
     Indication: HYPERPARATHYROIDISM SECONDARY
     Dosage: 25 MG, QD
     Route: 048
     Dates: start: 20170701, end: 20170727
  3. CINACALCET HCL [Suspect]
     Active Substance: CINACALCET HYDROCHLORIDE
     Dosage: 25 MG, QD
     Route: 048
     Dates: start: 20170922, end: 20171019
  4. METOPROLOL TARTRATE. [Concomitant]
     Active Substance: METOPROLOL TARTRATE
     Indication: RENAL HYPERTENSION
     Dosage: 25 MG, BID
     Route: 048
     Dates: start: 20170602
  5. ENOXAPARIN SODIUM. [Concomitant]
     Active Substance: ENOXAPARIN SODIUM
     Indication: CHRONIC KIDNEY DISEASE
     Dosage: 4000AXALU, 4 TIMES/WK
     Route: 042
     Dates: start: 20170805
  6. CINACALCET HCL [Suspect]
     Active Substance: CINACALCET HYDROCHLORIDE
     Dosage: 75 MG, QD
     Route: 048
     Dates: start: 20171229, end: 20180209
  7. SODIUM BICARBONATE. [Concomitant]
     Active Substance: SODIUM BICARBONATE
     Indication: METABOLIC ACIDOSIS
     Dosage: 1 G, TID
     Route: 048
     Dates: start: 20171101
  8. SODIUM RABEPRAZOLE [Concomitant]
     Active Substance: RABEPRAZOLE SODIUM
     Dosage: 20 MG, BID
     Route: 048
     Dates: start: 20180504, end: 20180516
  9. CINACALCET HCL [Suspect]
     Active Substance: CINACALCET HYDROCHLORIDE
     Dosage: 50 MG, QD
     Route: 048
     Dates: start: 20171020, end: 20171228
  10. NIFEDIPINE. [Concomitant]
     Active Substance: NIFEDIPINE
     Indication: RENAL HYPERTENSION
     Dosage: 30 MG, BID
     Route: 048
     Dates: start: 20170602
  11. TRIMETAZIDINE DIHYDROCHLORIDE [Concomitant]
     Active Substance: TRIMETAZIDINE DIHYDROCHLORIDE
     Indication: CARDIAC DISORDER
     Dosage: 20 MG, TID
     Route: 048
     Dates: start: 20170602
  12. CALCIUM ACETATE. [Concomitant]
     Active Substance: CALCIUM ACETATE
     Indication: HYPERPHOSPHATAEMIA
     Dosage: 0.6 G, BID
     Route: 065
     Dates: start: 20171101

REACTIONS (1)
  - Hyperparathyroidism secondary [Unknown]

NARRATIVE: CASE EVENT DATE: 20180503
